FAERS Safety Report 20381829 (Version 1)
Quarter: 2022Q1

REPORT INFORMATION
  Report Type: Spontaneous
  Country: US (occurrence: US)
  Receive Date: 20220127
  Receipt Date: 20220127
  Transmission Date: 20220423
  Serious: No
  Sender: FDA-Public Use
  Company Number: US-GLAXOSMITHKLINE-USCH2022003674

PATIENT
  Sex: Female

DRUGS (1)
  1. VOLTAREN [Suspect]
     Active Substance: DICLOFENAC SODIUM
     Indication: Product used for unknown indication
     Dosage: UNK

REACTIONS (4)
  - Drug hypersensitivity [Unknown]
  - Blister [Unknown]
  - Herpes zoster [Unknown]
  - Skin ulcer [Unknown]

NARRATIVE: CASE EVENT DATE: 20220122
